FAERS Safety Report 5840560-7 (Version None)
Quarter: 2008Q3

REPORT INFORMATION
  Report Type: 
  Country: None (occurrence: None)
  Receive Date: 20080811
  Receipt Date: 20080806
  Transmission Date: 20090109
  Serious: Yes (Death)
  Sender: FDA-Public Use
  Company Number: CN-ASTRAZENECA-2008AP06077

PATIENT
  Age: 28 Year
  Sex: Female

DRUGS (1)
  1. LIDOCAINE [Suspect]
     Indication: EPIDURAL ANAESTHESIA
     Dosage: 5 ML + 5 ML + 5 ML AT 5 MINUTE INTERVALS
     Route: 037

REACTIONS (10)
  - BRAIN INJURY [None]
  - BRAIN OEDEMA [None]
  - CARDIO-RESPIRATORY ARREST [None]
  - CONDITION AGGRAVATED [None]
  - CYANOSIS [None]
  - DRUG TOXICITY [None]
  - LOSS OF CONSCIOUSNESS [None]
  - MULTI-ORGAN FAILURE [None]
  - MUSCLE SPASMS [None]
  - OPISTHOTONUS [None]
